FAERS Safety Report 7835077-4 (Version None)
Quarter: 2011Q4

REPORT INFORMATION
  Report Type: 
  Country: None (occurrence: None)
  Receive Date: 20111024
  Receipt Date: 20111010
  Transmission Date: 20120403
  Serious: Yes (Other)
  Sender: FDA-Public Use
  Company Number: US-ELI_LILLY_AND_COMPANY-US201110002584

PATIENT
  Sex: Female

DRUGS (1)
  1. PROZAC [Suspect]
     Indication: PREMENSTRUAL SYNDROME
     Dosage: UNK
     Dates: start: 20000101

REACTIONS (3)
  - WEIGHT INCREASED [None]
  - WEIGHT DECREASED [None]
  - FATIGUE [None]
